FAERS Safety Report 10043276 (Version 1)
Quarter: 2014Q1

REPORT INFORMATION
  Report Type: Spontaneous
  Country: US (occurrence: None)
  Receive Date: 20140327
  Receipt Date: 20140327
  Transmission Date: 20141002
  Serious: Yes (Life-Threatening)
  Sender: FDA-Public Use
  Company Number: None

PATIENT
  Age: 16 Year
  Sex: Female
  Weight: 64.86 kg

DRUGS (2)
  1. CIMZIA [Suspect]
     Indication: JUVENILE IDIOPATHIC ARTHRITIS
     Dosage: 2 X 200 MG MONTHLY GIVEN INTO/UNDER SKIN
     Dates: start: 20140322
  2. CIMZIA [Suspect]
     Indication: CROHN^S DISEASE
     Dosage: 2 X 200 MG MONTHLY GIVEN INTO/UNDER SKIN
     Dates: start: 20140322

REACTIONS (6)
  - Pharyngeal oedema [None]
  - Heart rate increased [None]
  - Hypotension [None]
  - Dizziness [None]
  - Ear pain [None]
  - Headache [None]
